FAERS Safety Report 9639106 (Version 1)
Quarter: 2013Q4

REPORT INFORMATION
  Report Type: Spontaneous
  Country: CA (occurrence: None)
  Receive Date: 20131011
  Receipt Date: 20131011
  Transmission Date: 20140711
  Serious: Yes (Death, Other)
  Sender: FDA-Public Use
  Company Number: 2013038332

PATIENT
  Age: 74 Year
  Sex: Female

DRUGS (5)
  1. PRIVIGEN [Suspect]
     Indication: SEPTIC SHOCK
     Route: 042
     Dates: start: 20130727
  2. CORTICOSTEROIDS (CORTICOSTEROIDS) [Concomitant]
  3. LEVOPHED (NOREPINEPHRINE BITARTRATE) [Concomitant]
  4. AZITHROMYCIN (AZITHROMYCIN) [Concomitant]
  5. POTASSIUM CHLORIDE (POTASSIUM CHLORIDE) [Concomitant]

REACTIONS (1)
  - Haemolysis [None]
